FAERS Safety Report 5155986-7 (Version None)
Quarter: 2006Q4

REPORT INFORMATION
  Report Type: 
  Country: None (occurrence: None)
  Receive Date: 20061122
  Receipt Date: 20061115
  Transmission Date: 20070319
  Serious: Yes (Other)
  Sender: FDA-Public Use
  Company Number: 2006UW25545

PATIENT
  Age: 70 Year
  Sex: Female

DRUGS (4)
  1. CASODEX [Suspect]
     Route: 048
     Dates: start: 20061114, end: 20061114
  2. PERINDOPRIL ERBUMINE [Concomitant]
     Indication: BLOOD PRESSURE
     Route: 048
  3. GLYBURIDE [Concomitant]
     Indication: DIABETES MELLITUS
     Route: 048
  4. VITAMINS [Concomitant]

REACTIONS (4)
  - ABDOMINAL DISCOMFORT [None]
  - CHILLS [None]
  - MEDICATION ERROR [None]
  - WRONG DRUG ADMINISTERED [None]
